FAERS Safety Report 14700954 (Version 2)
Quarter: 2018Q3

REPORT INFORMATION
  Report Type: Report from Study
  Country: US (occurrence: US)
  Receive Date: 20180330
  Receipt Date: 20180823
  Transmission Date: 20181010
  Serious: No
  Sender: FDA-Public Use
  Company Number: PHEH2018US012227

PATIENT
  Sex: Female
  Weight: 48.53 kg

DRUGS (1)
  1. COSENTYX [Suspect]
     Active Substance: SECUKINUMAB
     Indication: PSORIATIC ARTHROPATHY
     Dosage: 150 MG, QMO
     Route: 058
     Dates: start: 201708

REACTIONS (4)
  - Psoriasis [Unknown]
  - Liver disorder [Unknown]
  - Chest discomfort [Unknown]
  - Inflammation [Unknown]
